FAERS Safety Report 7777294-8 (Version None)
Quarter: 2011Q3

REPORT INFORMATION
  Report Type: 
  Country: None (occurrence: None)
  Receive Date: 20110922
  Receipt Date: 20101103
  Transmission Date: 20111222
  Serious: Yes (Hospitalization)
  Sender: FDA-Public Use
  Company Number: TPG2010A00614

PATIENT
  Age: 73 Year
  Sex: Female

DRUGS (5)
  1. GILIMEPIRIDE (GLIMEPIRIDE) [Concomitant]
  2. PIOGLITAZONE HYDROCHLORIDE [Suspect]
     Indication: TYPE 2 DIABETES MELLITUS
     Dosage: PIOGLITAZONE 30 MG/D METFORMIN 1700 PER ORAL
     Route: 048
     Dates: start: 20070101, end: 20101001
  3. PANTOPRAZOLE [Concomitant]
  4. UNSPECIFIED PREPARATION AGAINST OSTEOPOROSIS (DRUGS FOR TREATMENT OF B [Concomitant]
  5. DIOVAN HCT [Concomitant]

REACTIONS (2)
  - FEMORAL NECK FRACTURE [None]
  - PATHOLOGICAL FRACTURE [None]
